FAERS Safety Report 19507103 (Version 1)
Quarter: 2021Q3

REPORT INFORMATION
  Report Type: Spontaneous
  Country: CA (occurrence: CA)
  Receive Date: 20210708
  Receipt Date: 20210708
  Transmission Date: 20211014
  Serious: Yes (Other)
  Sender: FDA-Public Use
  Company Number: CA-SA-2021SA222317

PATIENT
  Age: 59 Year
  Sex: Female

DRUGS (6)
  1. HYDROXYCHLOROQUINE [Suspect]
     Active Substance: HYDROXYCHLOROQUINE
  2. LEFLUNOMIDE. [Suspect]
     Active Substance: LEFLUNOMIDE
  3. COVID?19 VACCINE [Concomitant]
     Dosage: UNK
     Dates: start: 20210322
  4. KEFLEX [Concomitant]
     Active Substance: CEPHALEXIN
  5. PENICILLIN B [Concomitant]
     Active Substance: PHENETICILLIN
  6. AMOXICILLIN SODIUM [Concomitant]
     Active Substance: AMOXICILLIN SODIUM

REACTIONS (3)
  - Electrocardiogram QT interval abnormal [Unknown]
  - Mouth ulceration [Unknown]
  - Rash [Unknown]
